FAERS Safety Report 5156273-3 (Version None)
Quarter: 2006Q4

REPORT INFORMATION
  Report Type: 
  Country: None (occurrence: None)
  Receive Date: 20061122
  Receipt Date: 20061110
  Transmission Date: 20070319
  Serious: No
  Sender: FDA-Public Use
  Company Number: US-ELI_LILLY_AND_COMPANY-US200611002083

PATIENT
  Age: 40 Year
  Sex: Female
  Weight: 68.934 kg

DRUGS (1)
  1. CYMBALTA [Suspect]
     Dosage: UNK MG, UNK

REACTIONS (1)
  - HEPATIC ENZYME INCREASED [None]
